FAERS Safety Report 8039108-0 (Version None)
Quarter: 2012Q1

REPORT INFORMATION
  Report Type: 
  Country: None (occurrence: None)
  Receive Date: 20120111
  Receipt Date: 20111212
  Transmission Date: 20120608
  Serious: No
  Sender: FDA-Public Use
  Company Number: US-AMGEN-USASP2011060416

PATIENT
  Age: 63 Year
  Sex: Female

DRUGS (3)
  1. ENBREL [Suspect]
     Indication: RHEUMATOID ARTHRITIS
     Dosage: 50 MG, QWK
     Dates: start: 20110801
  2. ENBREL [Suspect]
     Indication: PSORIATIC ARTHROPATHY
     Dates: start: 20110812
  3. ENBREL [Suspect]

REACTIONS (13)
  - NERVOUSNESS [None]
  - VERTIGO [None]
  - INJECTION SITE PAIN [None]
  - GAIT DISTURBANCE [None]
  - CONSTIPATION [None]
  - HEADACHE [None]
  - SINUSITIS [None]
  - MEMORY IMPAIRMENT [None]
  - INJECTION SITE ERYTHEMA [None]
  - FALL [None]
  - INNER EAR DISORDER [None]
  - DRY SKIN [None]
  - DIZZINESS [None]
